FAERS Safety Report 19943300 (Version 1)
Quarter: 2021Q4

REPORT INFORMATION
  Report Type: Spontaneous
  Country: US (occurrence: US)
  Receive Date: 20211006
  Receipt Date: 20211006
  Transmission Date: 20220303
  Serious: Yes (Other)
  Sender: FDA-Public Use
  Company Number: None

PATIENT
  Age: 43 Year
  Sex: Male

DRUGS (1)
  1. REGEN-COV [Suspect]
     Active Substance: CASIRIVIMAB\IMDEVIMAB
     Indication: COVID-19
     Route: 042
     Dates: start: 20211005, end: 20211006

REACTIONS (7)
  - Bradycardia [None]
  - Asthenia [None]
  - Thrombocytopenia [None]
  - Heart rate decreased [None]
  - Dizziness [None]
  - Fatigue [None]
  - Presyncope [None]

NARRATIVE: CASE EVENT DATE: 20211006
